FAERS Safety Report 4911879-9 (Version None)
Quarter: 2006Q1

REPORT INFORMATION
  Report Type: 
  Country: None (occurrence: None)
  Receive Date: 20060213
  Receipt Date: 20060213
  Transmission Date: 20060701
  Serious: Yes (Other)
  Sender: FDA-Public Use
  Company Number: None

PATIENT
  Age: 55 Year
  Sex: Male
  Weight: 106.5953 kg

DRUGS (2)
  1. CHOLESTYRAMINE [Suspect]
     Indication: WEIGHT CONTROL
     Dosage: 1 FOIL PKG 1 DAY MOUTH
     Route: 048
     Dates: start: 20040801
  2. XENICAL [Suspect]
     Dosage: 1/3 OF CAPSULE 2 X DAY MOUTH
     Route: 048

REACTIONS (1)
  - RECTAL HAEMORRHAGE [None]
